FAERS Safety Report 11359796 (Version 2)
Quarter: 2015Q3

REPORT INFORMATION
  Report Type: Spontaneous
  Country: TR (occurrence: TR)
  Receive Date: 20150809
  Receipt Date: 20150824
  Transmission Date: 20151125
  Serious: Yes (Other)
  Sender: FDA-Public Use
  Company Number: TR-TEVA-584600ISR

PATIENT
  Age: 25 Year
  Sex: Male

DRUGS (2)
  1. ARIPIPRAZOLE. [Suspect]
     Active Substance: ARIPIPRAZOLE
     Indication: OBSESSIVE-COMPULSIVE DISORDER
     Dosage: 2.5 MILLIGRAM DAILY;
     Route: 048
  2. FLUVOXAMINE [Concomitant]
     Active Substance: FLUVOXAMINE
     Indication: OBSESSIVE-COMPULSIVE DISORDER
     Dosage: 100 MG/DAY GRADUALLY INCREASED TO 300 MG/DAY OVER 12 WEEKS
     Route: 048

REACTIONS (1)
  - Hiccups [Recovered/Resolved]
